FAERS Safety Report 9707196 (Version 1)
Quarter: 2013Q4

REPORT INFORMATION
  Report Type: Report from Study
  Country: CA (occurrence: CA)
  Receive Date: 20131125
  Receipt Date: 20131125
  Transmission Date: 20140711
  Serious: Yes (Other)
  Sender: FDA-Public Use
  Company Number: CA-JNJFOC-20131111441

PATIENT
  Sex: Female
  Weight: 52 kg

DRUGS (4)
  1. REMICADE [Suspect]
     Indication: CROHN^S DISEASE
     Route: 042
     Dates: start: 20130112
  2. METHOTREXATE [Concomitant]
     Route: 048
  3. CIPRALEX [Concomitant]
     Route: 065
  4. FOLIC ACID [Concomitant]
     Route: 065

REACTIONS (1)
  - Spinal fracture [Unknown]
